FAERS Safety Report 8603852-4 (Version None)
Quarter: 2012Q3

REPORT INFORMATION
  Report Type: 
  Country: None (occurrence: None)
  Receive Date: 20120818
  Receipt Date: 20120809
  Transmission Date: 20120928
  Serious: Yes (Hospitalization)
  Sender: FDA-Public Use
  Company Number: FR-BAXTER-2012BAX014045

PATIENT
  Sex: Male

DRUGS (18)
  1. METHOTREXATE [Suspect]
     Indication: BURKITT'S LYMPHOMA STAGE IV
     Dosage: 3 G/M2
     Route: 042
     Dates: start: 20120520, end: 20120520
  2. LEVOLEUCOVORIN CALCIUM [Suspect]
     Route: 042
     Dates: start: 20120521, end: 20120526
  3. CYTARABINE SANDOZ [Concomitant]
     Route: 037
  4. ALLOPURINOL [Concomitant]
     Route: 048
  5. CYCLOPHOSPHAMIDE [Suspect]
     Indication: BURKITT'S LYMPHOMA STAGE IV
     Route: 042
     Dates: start: 20120521, end: 20120523
  6. LYRICA [Concomitant]
     Route: 065
  7. MABTHERA [Suspect]
     Indication: BURKITT'S LYMPHOMA STAGE IV
     Route: 042
     Dates: start: 20120519, end: 20120519
  8. METHOTREXATE [Suspect]
     Route: 037
     Dates: start: 20120520
  9. DOXORUBICIN HYDROCHLORIDE [Suspect]
     Indication: BURKITT'S LYMPHOMA STAGE IV
     Route: 042
     Dates: start: 20120521, end: 20120521
  10. NEXIUM [Concomitant]
     Route: 048
  11. VINCRISTINE [Suspect]
     Indication: BURKITT'S LYMPHOMA STAGE IV
     Dosage: 2 MG
     Route: 042
     Dates: start: 20120520, end: 20120526
  12. VALACICLOVIR [Concomitant]
     Route: 048
  13. METHOTREXATE [Suspect]
     Route: 042
     Dates: start: 20120520
  14. PREDNISONE TAB [Suspect]
     Indication: BURKITT'S LYMPHOMA STAGE IV
     Route: 048
     Dates: start: 20120520, end: 20120525
  15. CALCIPARINE [Concomitant]
     Route: 058
  16. BACTRIM DS [Concomitant]
     Route: 048
  17. EMEND [Concomitant]
     Route: 048
  18. ONDANSETRON [Concomitant]
     Route: 042

REACTIONS (1)
  - RENAL FAILURE ACUTE [None]
